FAERS Safety Report 23340084 (Version 1)
Quarter: 2023Q4

REPORT INFORMATION
  Report Type: Spontaneous
  Country: CN (occurrence: CN)
  Receive Date: 20231227
  Receipt Date: 20231227
  Transmission Date: 20240110
  Serious: Yes (Other)
  Sender: FDA-Public Use
  Company Number: None

PATIENT
  Age: 56 Year
  Sex: Female

DRUGS (3)
  1. CYCLOPHOSPHAMIDE [Suspect]
     Active Substance: CYCLOPHOSPHAMIDE
     Indication: Invasive ductal breast carcinoma
     Dosage: 700 MG, ONE TIME IN ONE DAY, DILUED WITH 500 ML OF 0.9% SODIUM CHLORIDE (40 DROPS/MIN), AT 10:25
     Route: 041
     Dates: start: 20231210, end: 20231210
  2. CYCLOPHOSPHAMIDE [Suspect]
     Active Substance: CYCLOPHOSPHAMIDE
     Indication: Chemotherapy
  3. SODIUM CHLORIDE [Suspect]
     Active Substance: SODIUM CHLORIDE
     Indication: Medication dilution
     Dosage: (0.9%), 500 ML (40 DROPS/MIN), ONE TIME IN ONE DAY, USED TO DILUTE 700 MG OF CYCLOPHOSPHAMIDE FOR IN
     Route: 041
     Dates: start: 20231210, end: 20231210

REACTIONS (3)
  - Chest discomfort [Recovering/Resolving]
  - Tachypnoea [Recovering/Resolving]
  - Breath sounds abnormal [Recovering/Resolving]

NARRATIVE: CASE EVENT DATE: 20231210
